FAERS Safety Report 16124335 (Version 1)
Quarter: 2019Q1

REPORT INFORMATION
  Report Type: Spontaneous
  Country: US (occurrence: US)
  Receive Date: 20190327
  Receipt Date: 20190327
  Transmission Date: 20190418
  Serious: Yes (Other)
  Sender: FDA-Public Use
  Company Number: US-GLAXOSMITHKLINE-US2019GSK053698

PATIENT

DRUGS (1)
  1. CARVEDILOL. [Suspect]
     Active Substance: CARVEDILOL
     Dosage: 6.25 MG, UNK
     Dates: start: 2009

REACTIONS (4)
  - Myocardial infarction [Unknown]
  - Product substitution issue [Recovered/Resolved]
  - Arrhythmia [Unknown]
  - Adverse reaction [Unknown]
